FAERS Safety Report 4315723-2 (Version None)
Quarter: 2004Q1

REPORT INFORMATION
  Report Type: 
  Country: None (occurrence: None)
  Receive Date: 20040310
  Receipt Date: 20040227
  Transmission Date: 20041129
  Serious: Yes (Other)
  Sender: FDA-Public Use
  Company Number: GB-JNJFOC-20040300344

PATIENT
  Age: 7 Year
  Sex: Male

DRUGS (2)
  1. CONCERTA [Suspect]
     Indication: ATTENTION DEFICIT/HYPERACTIVITY DISORDER
     Dosage: SEE IMAGE
     Dates: start: 20030922, end: 20031001
  2. CONCERTA [Suspect]
     Indication: HYPERSENSITIVITY
     Dosage: SEE IMAGE
     Dates: start: 20030922, end: 20031001

REACTIONS (4)
  - ANXIETY [None]
  - FEAR [None]
  - HALLUCINATION, VISUAL [None]
  - SLEEP DISORDER [None]
